FAERS Safety Report 6121702-5 (Version None)
Quarter: 2009Q1

REPORT INFORMATION
  Report Type: 
  Country: None (occurrence: None)
  Receive Date: 20090313
  Receipt Date: 20090226
  Transmission Date: 20090719
  Serious: Yes (Other)
  Sender: FDA-Public Use
  Company Number: PPC200900009

PATIENT
  Age: 60 Year
  Sex: Male

DRUGS (5)
  1. ACYCLOVIR SODIUM INJECTION (ACYCLOVIR SODIUM) [Suspect]
     Indication: HIV INFECTION
     Dosage: 10 MG/KG; INTRAVENOUS
     Route: 042
  2. EFAVIRENZ [Concomitant]
  3. EMTRICITABINE (EMTRICITABINE) [Concomitant]
  4. TENOFOVIR DISOPROXIL FUMARATE [Concomitant]
  5. PRAVASTATIN SODIUM [Concomitant]

REACTIONS (5)
  - BLOOD CREATININE INCREASED [None]
  - CRYSTALLURIA [None]
  - HAEMATURIA [None]
  - KETONURIA [None]
  - PROTEINURIA [None]
